FAERS Safety Report 5128302-4 (Version None)
Quarter: 2006Q4

REPORT INFORMATION
  Report Type: 
  Country: None (occurrence: None)
  Receive Date: 20061011
  Receipt Date: 20060928
  Transmission Date: 20070319
  Serious: Yes (Other)
  Sender: FDA-Public Use
  Company Number: 2006110858

PATIENT
  Age: 71 Year
  Sex: Female
  Weight: 49.4 kg

DRUGS (5)
  1. VFEND [Suspect]
     Indication: BRONCHOPULMONARY ASPERGILLOSIS
     Dosage: 400 MG (2 IN 1 D), ORAL; 300 MG, INTRAVENOUS
     Route: 048
     Dates: start: 20060726, end: 20060908
  2. VFEND [Suspect]
     Indication: BRONCHOPULMONARY ASPERGILLOSIS
     Dosage: 400 MG (2 IN 1 D), ORAL; 300 MG, INTRAVENOUS
     Route: 048
     Dates: start: 20060909
  3. TAXOTERE [Suspect]
     Indication: LUNG NEOPLASM MALIGNANT
     Dosage: 60 MG (CYCLICAL), INTRAVENOUS
     Route: 042
     Dates: start: 20060831
  4. PARAPLATIN [Suspect]
     Dosage: 270 MG (CYCLICAL), INTRAVENOUS
     Route: 042
  5. ITRACONAZOLE [Concomitant]

REACTIONS (5)
  - GAMMA-GLUTAMYLTRANSFERASE INCREASED [None]
  - HEPATIC FUNCTION ABNORMAL [None]
  - MALAISE [None]
  - NAUSEA [None]
  - ORAL INTAKE REDUCED [None]
